FAERS Safety Report 25401359 (Version 1)
Quarter: 2025Q2

REPORT INFORMATION
  Report Type: Spontaneous
  Country: CN (occurrence: CN)
  Receive Date: 20250605
  Receipt Date: 20250605
  Transmission Date: 20250717
  Serious: Yes (Death, Life-Threatening, Hospitalization)
  Sender: STRIDES
  Company Number: None

PATIENT
  Age: 23 Year
  Sex: Male

DRUGS (6)
  1. ETOPOSIDE [Suspect]
     Active Substance: ETOPOSIDE
     Indication: Haemophagocytic lymphohistiocytosis
     Route: 065
     Dates: start: 202307
  2. DOXORUBICIN HYDROCHLORIDE [Suspect]
     Active Substance: DOXORUBICIN HYDROCHLORIDE
     Indication: Haemophagocytic lymphohistiocytosis
     Route: 065
     Dates: start: 202307
  3. METHYLPREDNISOLONE [Suspect]
     Active Substance: METHYLPREDNISOLONE
     Indication: Haemophagocytic lymphohistiocytosis
     Route: 065
     Dates: start: 202307, end: 2023
  4. METHYLPREDNISOLONE [Suspect]
     Active Substance: METHYLPREDNISOLONE
     Route: 065
     Dates: start: 2023, end: 2023
  5. METHYLPREDNISOLONE [Suspect]
     Active Substance: METHYLPREDNISOLONE
     Route: 065
     Dates: start: 2023, end: 2023
  6. METHYLPREDNISOLONE [Suspect]
     Active Substance: METHYLPREDNISOLONE
     Route: 065
     Dates: start: 2023, end: 202308

REACTIONS (4)
  - Cerebral aspergillosis [Fatal]
  - Subarachnoid haemorrhage [Fatal]
  - Brain herniation [Fatal]
  - Coma [Fatal]

NARRATIVE: CASE EVENT DATE: 20231101
